FAERS Safety Report 4759094-6 (Version None)
Quarter: 2005Q3

REPORT INFORMATION
  Report Type: 
  Country: None (occurrence: None)
  Receive Date: 20050826
  Receipt Date: 20050817
  Transmission Date: 20060218
  Serious: Yes (Hospitalization, Other)
  Sender: FDA-Public Use
  Company Number: HQWYE970217AUG05

PATIENT

DRUGS (1)
  1. MYLOTARG [Suspect]

REACTIONS (1)
  - CHEST PAIN [None]
